FAERS Safety Report 10144822 (Version 1)
Quarter: 2014Q2

REPORT INFORMATION
  Report Type: Spontaneous
  Country: US (occurrence: US)
  Receive Date: 20140430
  Receipt Date: 20140430
  Transmission Date: 20141212
  Serious: No
  Sender: FDA-Public Use
  Company Number: US-SA-2014SA007402

PATIENT
  Age: 46 Year
  Sex: Female

DRUGS (1)
  1. ENOXAPARIN SODIUM - WINTHROP [Suspect]
     Indication: PULMONARY EMBOLISM
     Route: 065
     Dates: start: 20140115

REACTIONS (1)
  - Injection site discolouration [Not Recovered/Not Resolved]
